FAERS Safety Report 18229050 (Version 2)
Quarter: 2020Q3

REPORT INFORMATION
  Report Type: Report from Study
  Country: BR (occurrence: BR)
  Receive Date: 20200903
  Receipt Date: 20200904
  Transmission Date: 20201103
  Serious: Yes (Hospitalization)
  Sender: FDA-Public Use
  Company Number: BR-BAYER-2020-105263

PATIENT
  Age: 26 Year
  Sex: Female

DRUGS (3)
  1. LAMOTRIGINA [Concomitant]
     Active Substance: LAMOTRIGINE
     Indication: SEIZURE
     Dosage: 2 DF, QD
  2. BETAFERON [Suspect]
     Active Substance: INTERFERON BETA-1B
     Indication: SECONDARY PROGRESSIVE MULTIPLE SCLEROSIS
     Dosage: QOD
     Dates: start: 2006
  3. VITAMINA D [COLECALCIFEROL] [Concomitant]
     Indication: VITAMIN SUPPLEMENTATION
     Dosage: UNK

REACTIONS (4)
  - Disorganised speech [None]
  - Urinary incontinence [None]
  - Anal incontinence [None]
  - Seizure [None]

NARRATIVE: CASE EVENT DATE: 20171225
